FAERS Safety Report 6468648-0 (Version None)
Quarter: 2009Q4

REPORT INFORMATION
  Report Type: 
  Country: None (occurrence: None)
  Receive Date: 20091203
  Receipt Date: 20091125
  Transmission Date: 20100525
  Serious: Yes (Other)
  Sender: FDA-Public Use
  Company Number: FR-JNJFOC-20091108163

PATIENT
  Sex: Male

DRUGS (1)
  1. REMICADE [Suspect]
     Indication: CROHN'S DISEASE
     Dosage: FOR 11 MONTHS
     Route: 042

REACTIONS (3)
  - ECZEMA [None]
  - PSORIASIS [None]
  - SKIN LESION [None]
